FAERS Safety Report 20136647 (Version 2)
Quarter: 2021Q4

REPORT INFORMATION
  Report Type: Report from Study
  Country: DE (occurrence: DE)
  Receive Date: 20211201
  Receipt Date: 20211202
  Transmission Date: 20220303
  Serious: Yes (Hospitalization, Other)
  Sender: FDA-Public Use
  Company Number: DE-TAKEDA-DE201706464

PATIENT
  Age: 6 Decade
  Sex: Female
  Weight: 50 kg

DRUGS (5)
  1. TEDUGLUTIDE [Suspect]
     Active Substance: TEDUGLUTIDE
     Indication: Short-bowel syndrome
     Dosage: 0.26 MILLIGRAM, QD
     Route: 058
     Dates: start: 20160822
  2. TEDUGLUTIDE [Suspect]
     Active Substance: TEDUGLUTIDE
     Indication: Short-bowel syndrome
     Dosage: 0.26 MILLIGRAM, QD
     Route: 058
     Dates: start: 20160822
  3. TEDUGLUTIDE [Suspect]
     Active Substance: TEDUGLUTIDE
     Indication: Short-bowel syndrome
     Dosage: 0.26 MILLIGRAM, QD
     Route: 058
     Dates: start: 20160822
  4. TEDUGLUTIDE [Suspect]
     Active Substance: TEDUGLUTIDE
     Indication: Short-bowel syndrome
     Dosage: 0.26 MILLIGRAM, QD
     Route: 058
     Dates: start: 20160822
  5. RESOURCE FRUIT BEVERAGE [Concomitant]
     Indication: Nutritional supplementation
     Dosage: UNK, UNKNOWN
     Route: 048
     Dates: start: 20161027, end: 20170207

REACTIONS (2)
  - Device related infection [Recovered/Resolved]
  - Iron deficiency anaemia [Recovered/Resolved]

NARRATIVE: CASE EVENT DATE: 20170117
